FAERS Safety Report 7268726-2 (Version None)
Quarter: 2011Q1

REPORT INFORMATION
  Report Type: 
  Country: None (occurrence: None)
  Receive Date: 20110201
  Receipt Date: 20110120
  Transmission Date: 20110831
  Serious: Yes (Other)
  Sender: FDA-Public Use
  Company Number: US-ELI_LILLY_AND_COMPANY-US201101004209

PATIENT
  Sex: Female

DRUGS (2)
  1. HUMULIN R [Suspect]
     Indication: DIABETES MELLITUS
     Dosage: UNK, AS NEEDED
     Dates: start: 19520101
  2. HUMULIN 70/30 [Suspect]
     Indication: DIABETES MELLITUS
     Dosage: 52 U, EACH MORNING
     Dates: start: 19520101

REACTIONS (7)
  - DRUG INEFFECTIVE [None]
  - PHARYNGITIS [None]
  - LOSS OF CONSCIOUSNESS [None]
  - FOOD ALLERGY [None]
  - DRUG HYPERSENSITIVITY [None]
  - HYPOGLYCAEMIC UNCONSCIOUSNESS [None]
  - LIVER DISORDER [None]
